FAERS Safety Report 7104665-5 (Version None)
Quarter: 2010Q4

REPORT INFORMATION
  Report Type: 
  Country: None (occurrence: None)
  Receive Date: 20101109
  Receipt Date: 20101025
  Transmission Date: 20110411
  Serious: Yes (Other)
  Sender: FDA-Public Use
  Company Number: 1000017087

PATIENT
  Age: 48 Year
  Sex: Female

DRUGS (3)
  1. CITALOPRAM HYDROBROMIDE [Suspect]
     Dosage: (2000 MG,ONCE), ORAL
     Route: 048
     Dates: start: 20101025, end: 20101025
  2. ESCITALOPRAM OXALATE [Concomitant]
     Dosage: (ONCE), ORAL
     Route: 048
     Dates: start: 20101025, end: 20101025
  3. MIDAZOLAM HCL [Suspect]
     Dosage: (ONCE),  ORAL
     Route: 048
     Dates: start: 20101025, end: 20101025

REACTIONS (3)
  - MULTIPLE DRUG OVERDOSE INTENTIONAL [None]
  - SOPOR [None]
  - SUICIDE ATTEMPT [None]
